FAERS Safety Report 24203994 (Version 1)
Quarter: 2024Q3

REPORT INFORMATION
  Report Type: Spontaneous
  Country: IT (occurrence: IT)
  Receive Date: 20240813
  Receipt Date: 20240813
  Transmission Date: 20241016
  Serious: Yes (Other)
  Sender: RANBAXY
  Company Number: IT-MINISAL02-987034

PATIENT
  Age: 79 Year
  Sex: Female

DRUGS (2)
  1. GEMCITABINE [Suspect]
     Active Substance: GEMCITABINE
     Indication: Bladder cancer
     Dosage: 1044 MILLIGRAM, UNK
     Route: 040
     Dates: start: 20230713, end: 20230713
  2. CISPLATIN [Suspect]
     Active Substance: CISPLATIN
     Indication: Bladder cancer
     Dosage: 26 MILLIGRAM, UNK
     Route: 040
     Dates: start: 20230713, end: 20230713

REACTIONS (2)
  - Thrombocytopenia [Recovering/Resolving]
  - Abdominal pain [Recovering/Resolving]

NARRATIVE: CASE EVENT DATE: 20230719
